FAERS Safety Report 25079036 (Version 2)
Quarter: 2025Q2

REPORT INFORMATION
  Report Type: Spontaneous
  Country: CA (occurrence: CA)
  Receive Date: 20250314
  Receipt Date: 20250512
  Transmission Date: 20250716
  Serious: Yes (Other)
  Sender: PFIZER
  Company Number: CA-PFIZER INC-202500055974

PATIENT
  Age: 33 Year
  Sex: Male

DRUGS (1)
  1. ABRILADA [Suspect]
     Active Substance: ADALIMUMAB-AFZB
     Indication: Colitis ulcerative
     Route: 058
     Dates: start: 20240511

REACTIONS (1)
  - Intestinal anastomosis [Unknown]

NARRATIVE: CASE EVENT DATE: 20241201
